FAERS Safety Report 25465135 (Version 1)
Quarter: 2025Q2

REPORT INFORMATION
  Report Type: Report from Study
  Country: IT (occurrence: IT)
  Receive Date: 20250622
  Receipt Date: 20250622
  Transmission Date: 20250716
  Serious: Yes (Death)
  Sender: ABBVIE
  Company Number: IT-ABBVIE-6337463

PATIENT
  Age: 72 Year
  Sex: Male

DRUGS (18)
  1. VENETOCLAX [Suspect]
     Active Substance: VENETOCLAX
     Indication: Acute myeloid leukaemia
     Route: 048
     Dates: start: 20250117, end: 20250207
  2. VENETOCLAX [Suspect]
     Active Substance: VENETOCLAX
     Indication: Acute myeloid leukaemia
     Route: 048
     Dates: start: 20240919, end: 20240919
  3. VENETOCLAX [Suspect]
     Active Substance: VENETOCLAX
     Indication: Acute myeloid leukaemia
     Route: 048
     Dates: start: 20240918, end: 20240918
  4. VENETOCLAX [Suspect]
     Active Substance: VENETOCLAX
     Indication: Acute myeloid leukaemia
     Route: 048
     Dates: start: 20241108, end: 20241205
  5. VENETOCLAX [Suspect]
     Active Substance: VENETOCLAX
     Indication: Acute myeloid leukaemia
     Route: 048
     Dates: start: 20240920, end: 20240920
  6. VENETOCLAX [Suspect]
     Active Substance: VENETOCLAX
     Indication: Acute myeloid leukaemia
     Route: 048
     Dates: start: 20240921, end: 20241015
  7. PERFALGAN [Concomitant]
     Active Substance: ACETAMINOPHEN
     Indication: Haemorrhoids
     Route: 042
     Dates: start: 20250116, end: 20250116
  8. PERFALGAN [Concomitant]
     Active Substance: ACETAMINOPHEN
     Indication: Haemorrhoids
     Route: 042
     Dates: start: 20250118
  9. ABSTRAL [Concomitant]
     Active Substance: FENTANYL CITRATE
     Indication: Haemorrhoids
     Route: 048
     Dates: start: 20250116, end: 20250123
  10. LEVOFLOXACIN [Concomitant]
     Active Substance: LEVOFLOXACIN
     Indication: Antibiotic therapy
     Route: 065
     Dates: start: 20240924
  11. LIDOCAINE [Concomitant]
     Active Substance: LIDOCAINE
     Indication: Haemorrhoids
     Route: 061
     Dates: start: 20250120, end: 20250120
  12. NOXAFIL [Concomitant]
     Active Substance: POSACONAZOLE
     Indication: Antifungal treatment
     Route: 048
     Dates: start: 20240924
  13. TEICOPLANIN [Concomitant]
     Active Substance: TEICOPLANIN
     Indication: Phlebitis
     Route: 042
     Dates: start: 20250118, end: 20250120
  14. ALLOPURINOL [Concomitant]
     Active Substance: ALLOPURINOL
     Indication: Prophylaxis
     Route: 048
     Dates: start: 20240918, end: 20240924
  15. AZACITIDINE [Suspect]
     Active Substance: AZACITIDINE
     Indication: Acute myeloid leukaemia
     Route: 065
     Dates: start: 20241108, end: 20241114
  16. AZACITIDINE [Suspect]
     Active Substance: AZACITIDINE
     Indication: Acute myeloid leukaemia
     Route: 065
     Dates: start: 20250117, end: 20250123
  17. AZACITIDINE [Suspect]
     Active Substance: AZACITIDINE
     Indication: Acute myeloid leukaemia
     Dosage: 150 MG/M2 BSA
     Route: 065
     Dates: start: 20240918, end: 20240924
  18. OMEPRAZOLE [Concomitant]
     Active Substance: OMEPRAZOLE
     Indication: Gastrointestinal disorder prophylaxis
     Route: 048
     Dates: start: 20240924

REACTIONS (5)
  - Pyrexia [Fatal]
  - Asthenia [Not Recovered/Not Resolved]
  - Arthralgia [Recovered/Resolved]
  - Haemorrhoids [Recovering/Resolving]
  - Phlebitis [Recovering/Resolving]

NARRATIVE: CASE EVENT DATE: 20241112
